FAERS Safety Report 12737266 (Version 1)
Quarter: 2016Q3

REPORT INFORMATION
  Report Type: Spontaneous
  Country: US (occurrence: US)
  Receive Date: 20160912
  Receipt Date: 20160912
  Transmission Date: 20161109
  Serious: Yes (Other)
  Sender: FDA-Public Use
  Company Number: US-HQ SPECIALTY-US-2016INT000877

PATIENT
  Age: 41 Year
  Sex: Female

DRUGS (5)
  1. TRASTUZUMAB [Suspect]
     Active Substance: TRASTUZUMAB
     Indication: HER-2 POSITIVE BREAST CANCER
     Dosage: WEEKLY, CYCLES 1-4
     Route: 065
  2. LAPATINIB [Suspect]
     Active Substance: LAPATINIB
     Indication: HER-2 POSITIVE BREAST CANCER
     Dosage: DAILY, CYCLES 1-4
     Route: 048
  3. TRASTUZUMAB [Suspect]
     Active Substance: TRASTUZUMAB
     Dosage: EVERY 3 WEEKS (CYCLES 5?19)
  4. PACLITAXEL. [Suspect]
     Active Substance: PACLITAXEL
     Indication: HER-2 POSITIVE BREAST CANCER
     Dosage: DOSE-DENSE, EVERY OTHER WEEK DOSING, 4 CYCLES
  5. LAPATINIB [Suspect]
     Active Substance: LAPATINIB
     Dosage: EVERY 3 WEEKS (CYCLES 5?19)

REACTIONS (6)
  - Rash erythematous [Unknown]
  - Rash maculo-papular [Unknown]
  - Onychoclasis [Unknown]
  - Pruritus [Unknown]
  - Dry skin [Unknown]
  - Breast cellulitis [Unknown]
